FAERS Safety Report 16469718 (Version 2)
Quarter: 2019Q3

REPORT INFORMATION
  Report Type: Spontaneous
  Country: DE (occurrence: DE)
  Receive Date: 20190624
  Receipt Date: 20190827
  Transmission Date: 20191004
  Serious: Yes (Hospitalization, Other)
  Sender: FDA-Public Use
  Company Number: DE-NOVOPROD-667948

PATIENT
  Age: 79 Year
  Sex: Female

DRUGS (2)
  1. NOVORAPID [Suspect]
     Active Substance: INSULIN ASPART
     Indication: TYPE 1 DIABETES MELLITUS
     Dosage: 40 UNITS (IN THE MORNING: 6, AT NOON: 12, IN THE EVENING: 12, AT 22:00: 10 UNITS)
     Route: 065
  2. NOVORAPID [Suspect]
     Active Substance: INSULIN ASPART
     Dosage: 58 UNITS(IN THE MORNING: 6, AT NOON: 12, IN THE EVENING: 18, 12, AT 22:00: 10 UNITS, ONGOING)
     Route: 065

REACTIONS (4)
  - Hypoglycaemia [Unknown]
  - Spinal fracture [Unknown]
  - Cerebral haemorrhage [Unknown]
  - Hypoglycaemia unawareness [Unknown]
